FAERS Safety Report 6612078-5 (Version None)
Quarter: 2010Q1

REPORT INFORMATION
  Report Type: 
  Country: None (occurrence: None)
  Receive Date: 20100303
  Receipt Date: 20100224
  Transmission Date: 20100710
  Serious: Yes (Hospitalization)
  Sender: FDA-Public Use
  Company Number: B0636259A

PATIENT
  Age: 2 Year
  Sex: Male

DRUGS (1)
  1. ZINNAT [Suspect]
     Indication: OTITIS MEDIA ACUTE
     Route: 048
     Dates: start: 20091101

REACTIONS (4)
  - BALANCE DISORDER [None]
  - COORDINATION ABNORMAL [None]
  - FALL [None]
  - MALAISE [None]
